FAERS Safety Report 6260844-0 (Version None)
Quarter: 2009Q3

REPORT INFORMATION
  Report Type: 
  Country: None (occurrence: None)
  Receive Date: 20090707
  Receipt Date: 20090630
  Transmission Date: 20100115
  Serious: Yes (Other)
  Sender: FDA-Public Use
  Company Number: 2009SP012911

PATIENT

DRUGS (2)
  1. BETAMETHASONE SODIUM PHOSPHATE [Suspect]
     Indication: DRUG USE FOR UNKNOWN INDICATION
     Dosage: TRPL
     Route: 064
     Dates: start: 20080701, end: 20080710
  2. AMOXICILLIN [Suspect]
     Indication: DRUG USE FOR UNKNOWN INDICATION
     Dosage: 1 DF; ONCE; IV
     Route: 042
     Dates: start: 20080710, end: 20080710

REACTIONS (3)
  - BRADYCARDIA FOETAL [None]
  - CAESAREAN SECTION [None]
  - MATERNAL DRUGS AFFECTING FOETUS [None]
